FAERS Safety Report 19500095 (Version 3)
Quarter: 2021Q3

REPORT INFORMATION
  Report Type: Spontaneous
  Country: US (occurrence: US)
  Receive Date: 20210706
  Receipt Date: 20210829
  Transmission Date: 20211014
  Serious: No
  Sender: FDA-Public Use
  Company Number: US-B.I. PHARMACEUTICALS,INC./RIDGEFIELD-2021-BI-113600

PATIENT
  Age: 67 Year
  Sex: Female

DRUGS (2)
  1. JARDIANCE [Suspect]
     Active Substance: EMPAGLIFLOZIN
     Indication: TYPE 2 DIABETES MELLITUS
     Dosage: 1 (10 MG) TABLET PO QAM
     Route: 048
     Dates: start: 20210115
  2. METFORMIN ER [Concomitant]
     Active Substance: METFORMIN HYDROCHLORIDE
     Indication: TYPE 2 DIABETES MELLITUS
     Dosage: 1 (500 MG) ER TABLET PO BID
     Route: 048
     Dates: start: 2020

REACTIONS (3)
  - Product physical issue [Unknown]
  - Blood glucose increased [Not Recovered/Not Resolved]
  - Drug ineffective [Unknown]

NARRATIVE: CASE EVENT DATE: 20210415
